FAERS Safety Report 7448306-6 (Version None)
Quarter: 2011Q2

REPORT INFORMATION
  Report Type: 
  Country: None (occurrence: None)
  Receive Date: 20110429
  Receipt Date: 20090526
  Transmission Date: 20111010
  Serious: Yes (Death)
  Sender: FDA-Public Use
  Company Number: DE-GENENTECH-317672

PATIENT
  Age: 78 Year

DRUGS (1)
  1. LUCENTIS [Suspect]
     Indication: MACULAR DEGENERATION
     Dosage: UNK
     Route: 031
     Dates: start: 20090414

REACTIONS (3)
  - DEATH [None]
  - VISUAL IMPAIRMENT [None]
  - EYE INFLAMMATION [None]
